FAERS Safety Report 5442327-0 (Version None)
Quarter: 2007Q3

REPORT INFORMATION
  Report Type: 
  Country: None (occurrence: None)
  Receive Date: 20070904
  Receipt Date: 20070823
  Transmission Date: 20080115
  Serious: Yes (Hospitalization)
  Sender: FDA-Public Use
  Company Number: ES-PFIZER INC-2007069911

PATIENT
  Age: 77 Year
  Sex: Male

DRUGS (1)
  1. HALCION [Suspect]
     Indication: AGITATION
     Dosage: DAILY DOSE:.125MG-FREQ:DAILY
     Route: 048
     Dates: start: 20070620, end: 20070626

REACTIONS (2)
  - ACUTE RESPIRATORY FAILURE [None]
  - SOMNOLENCE [None]
